FAERS Safety Report 8979197 (Version 1)
Quarter: 2012Q4

REPORT INFORMATION
  Report Type: Report from Study
  Country: FR (occurrence: FR)
  Receive Date: 20121221
  Receipt Date: 20121221
  Transmission Date: 20130627
  Serious: Yes (Life-Threatening, Hospitalization)
  Sender: FDA-Public Use
  Company Number: FR-VIIV HEALTHCARE LIMITED-B0824958A

PATIENT
  Age: 45 Year
  Sex: Male
  Weight: 62 kg

DRUGS (5)
  1. MARAVIROC [Suspect]
     Indication: HIV INFECTION
     Dosage: 300MG Twice per day
     Dates: start: 20120509
  2. ISENTRESS [Suspect]
     Indication: HIV INFECTION
     Dosage: 400MG Twice per day
     Dates: start: 20120509
  3. IMOVANE [Concomitant]
     Indication: INSOMNIA
     Dosage: 7.5MG Per day
     Dates: start: 20120307
  4. ATARAX [Concomitant]
     Indication: ANXIETY
     Dosage: 50MG Per day
     Dates: start: 20120307
  5. SPIRIVA [Concomitant]
     Indication: CHRONIC OBSTRUCTIVE PULMONARY DISEASE
     Dosage: 18MG Per day
     Dates: start: 20111128

REACTIONS (1)
  - Myocardial infarction [Unknown]
